FAERS Safety Report 5206210-8 (Version None)
Quarter: 2006Q4

REPORT INFORMATION
  Report Type: 
  Country: None (occurrence: None)
  Receive Date: 20061026
  Receipt Date: 20060914
  Transmission Date: 20070319
  Serious: No
  Sender: FDA-Public Use
  Company Number: 2006060476

PATIENT
  Age: 73 Year
  Sex: Female
  Weight: 86.1834 kg

DRUGS (9)
  1. LYRICA [Suspect]
     Indication: HEADACHE
     Dosage: 150 MG (50 MG, 3 IN 1 D); ORAL
     Route: 048
     Dates: start: 20060301, end: 20060801
  2. LYRICA [Suspect]
     Indication: MIGRAINE PROPHYLAXIS
     Dosage: 150 MG (50 MG, 3 IN 1 D); ORAL
     Route: 048
     Dates: start: 20060301, end: 20060801
  3. PREVACID [Concomitant]
  4. COZAAR [Concomitant]
  5. ATIVAN [Concomitant]
  6. CARAFATE [Concomitant]
  7. IMODIUM A-D [Concomitant]
  8. AXID [Concomitant]
  9. PERCOCET [Concomitant]

REACTIONS (9)
  - ALOPECIA [None]
  - BODY HEIGHT DECREASED [None]
  - CONSTIPATION [None]
  - DIARRHOEA [None]
  - DRUG INEFFECTIVE [None]
  - MUSCLE SPASMS [None]
  - PAIN IN EXTREMITY [None]
  - PARAESTHESIA [None]
  - POLLAKIURIA [None]
